FAERS Safety Report 7927253-7 (Version None)
Quarter: 2011Q4

REPORT INFORMATION
  Report Type: 
  Country: None (occurrence: None)
  Receive Date: 20111118
  Receipt Date: 20111115
  Transmission Date: 20120403
  Serious: No
  Sender: FDA-Public Use
  Company Number: US-TEVA-309574USA

PATIENT
  Age: 7 Year
  Sex: Female

DRUGS (4)
  1. SERETIDE                           /01420901/ [Concomitant]
  2. PROAIR HFA [Suspect]
     Indication: DYSPNOEA
  3. PROAIR HFA [Suspect]
     Indication: WHEEZING
     Route: 055
     Dates: start: 20100401
  4. ALBUTEROL SULFATE AUTOHALER [Concomitant]

REACTIONS (1)
  - THROAT IRRITATION [None]
